FAERS Safety Report 22851265 (Version 4)
Quarter: 2024Q1

REPORT INFORMATION
  Report Type: Spontaneous
  Country: AU (occurrence: AU)
  Receive Date: 20230822
  Receipt Date: 20240201
  Transmission Date: 20240410
  Serious: Yes (Other)
  Sender: FDA-Public Use
  Company Number: AU-BIOVITRUM-2023-AU-013913

PATIENT

DRUGS (2)
  1. PEGCETACOPLAN [Suspect]
     Active Substance: PEGCETACOPLAN
     Indication: Product used for unknown indication
     Dosage: THREE TIMES WEEKLY, MON/WED/FRI.
     Route: 058
  2. PEGCETACOPLAN [Suspect]
     Active Substance: PEGCETACOPLAN
     Dosage: 3X DAILY S/C DOSES.
     Route: 058

REACTIONS (3)
  - Breakthrough haemolysis [Unknown]
  - Skin cancer [Unknown]
  - Off label use [Unknown]
